FAERS Safety Report 7495759-3 (Version None)
Quarter: 2011Q2

REPORT INFORMATION
  Report Type: 
  Country: None (occurrence: None)
  Receive Date: 20110523
  Receipt Date: 20110516
  Transmission Date: 20111010
  Serious: Yes (Death, Hospitalization, Other)
  Sender: FDA-Public Use
  Company Number: CA-ELI_LILLY_AND_COMPANY-CA201105004260

PATIENT
  Sex: Female
  Weight: 92.5 kg

DRUGS (21)
  1. ZYPREXA [Suspect]
     Dosage: 5 MG, QD
  2. ASPIRIN [Concomitant]
  3. SPIRIVA [Concomitant]
  4. PREDNISONE [Concomitant]
  5. PULMICORT [Concomitant]
  6. PLAQUENIL [Concomitant]
  7. LOPERAMIDE [Concomitant]
  8. APO-HYDROXYQUINE [Concomitant]
  9. ZYPREXA [Suspect]
     Indication: SCHIZOPHRENIA
     Dosage: 15 MG, QD
  10. ATROVENT [Concomitant]
  11. VENTOLIN HFA [Concomitant]
  12. FOLIC ACID [Concomitant]
  13. ZOCOR [Concomitant]
  14. SULFASALAZINE [Concomitant]
  15. VITAMIN B6 [Concomitant]
  16. ZYPREXA [Suspect]
     Dosage: 10 MG, QD
  17. GLYBURIDE [Concomitant]
  18. NIASPAN [Concomitant]
  19. ZYPREXA [Suspect]
     Dosage: 20 MG, QD
  20. ZYPREXA [Suspect]
     Dosage: 7.5 MG, QD
  21. ZYPREXA ZYDIS [Suspect]
     Indication: SCHIZOPHRENIA
     Dosage: 15 MG, QD

REACTIONS (9)
  - HYPERCALCAEMIA [None]
  - DIABETES MELLITUS [None]
  - RENAL FAILURE [None]
  - NEUROPATHY PERIPHERAL [None]
  - DEATH [None]
  - LEFT VENTRICULAR DYSFUNCTION [None]
  - WEIGHT INCREASED [None]
  - DIABETIC RETINOPATHY [None]
  - AORTIC VALVE STENOSIS [None]
